FAERS Safety Report 7258671-0 (Version None)
Quarter: 2011Q1

REPORT INFORMATION
  Report Type: 
  Country: None (occurrence: None)
  Receive Date: 20110129
  Receipt Date: 20100527
  Transmission Date: 20110831
  Serious: No
  Sender: FDA-Public Use
  Company Number: US-ABBOTT-10P-163-0647932-00

PATIENT
  Sex: Male

DRUGS (4)
  1. HUMIRA [Suspect]
     Route: 058
  2. HUMIRA [Suspect]
     Indication: CROHN'S DISEASE
     Route: 058
     Dates: start: 20100506, end: 20100506
  3. HUMIRA [Suspect]
     Route: 058
     Dates: start: 20100520, end: 20100520
  4. ZOFRAN [Suspect]
     Indication: NAUSEA

REACTIONS (3)
  - NAUSEA [None]
  - HEADACHE [None]
  - SOMNOLENCE [None]
